FAERS Safety Report 21012100 (Version 3)
Quarter: 2024Q2

REPORT INFORMATION
  Report Type: Report from Study
  Country: BR (occurrence: BR)
  Receive Date: 20220627
  Receipt Date: 20240501
  Transmission Date: 20240716
  Serious: Yes (Other)
  Sender: FDA-Public Use
  Company Number: BR-NOVARTISPH-NVSC2022BR063373

PATIENT
  Age: 44 Year
  Sex: Female
  Weight: 80 kg

DRUGS (5)
  1. TAFINLAR [Suspect]
     Active Substance: DABRAFENIB MESYLATE
     Indication: Melanoma recurrent
     Dosage: 4 DOSAGE FORM, QD  (4 TABLETS PER DAY)
     Route: 048
     Dates: start: 202111, end: 202202
  2. MEKINIST [Suspect]
     Active Substance: TRAMETINIB DIMETHYL SULFOXIDE
     Indication: Melanoma recurrent
     Dosage: 1 DOSAGE FORM, QD (1 TABLET PER DAY)
     Route: 048
     Dates: start: 202111, end: 202202
  3. ROSUVASTATIN CALCIUM [Suspect]
     Active Substance: ROSUVASTATIN CALCIUM
     Indication: Product used for unknown indication
     Dosage: UNK, QOD (EVERY OTHER DAY) (STARTED MANY YEARS AGO)
     Route: 048
  4. VENLAFAXINE HYDROCHLORIDE [Concomitant]
     Active Substance: VENLAFAXINE HYDROCHLORIDE
     Indication: Product used for unknown indication
     Dosage: UNK, 91 PER DAY (STARTED MANY YEARS AGO)
     Route: 048
  5. SYNTHROID [Concomitant]
     Active Substance: LEVOTHYROXINE SODIUM
     Indication: Product used for unknown indication
     Dosage: UNK, QD (STARTED MANY YEARS AGO)
     Route: 048

REACTIONS (3)
  - Eye inflammation [Unknown]
  - Visual impairment [Recovered/Resolved]
  - Asthenia [Unknown]

NARRATIVE: CASE EVENT DATE: 20211220
